FAERS Safety Report 8074781-2 (Version None)
Quarter: 2012Q1

REPORT INFORMATION
  Report Type: 
  Country: None (occurrence: None)
  Receive Date: 20120126
  Receipt Date: 20120124
  Transmission Date: 20120608
  Serious: No
  Sender: FDA-Public Use
  Company Number: US-PFIZER INC-2012020610

PATIENT
  Sex: Female
  Weight: 111 kg

DRUGS (3)
  1. DALIRESP [Concomitant]
     Indication: CHRONIC OBSTRUCTIVE PULMONARY DISEASE
     Dosage: 500 UG, DAILY
  2. DULERA ORAL INHALATION [Concomitant]
     Indication: BRONCHITIS CHRONIC
     Dosage: 100MCG/5MCG AT TWO PUFFS TWO TIMES A DAY
  3. PRISTIQ [Suspect]
     Indication: DEPRESSION
     Dosage: 50 MG, DAILY
     Route: 048
     Dates: start: 20110101

REACTIONS (1)
  - DRUG INEFFECTIVE [None]
